FAERS Safety Report 4871933-7 (Version None)
Quarter: 2005Q4

REPORT INFORMATION
  Report Type: 
  Country: None (occurrence: None)
  Receive Date: 20051230
  Receipt Date: 20051220
  Transmission Date: 20060501
  Serious: Yes (Hospitalization)
  Sender: FDA-Public Use
  Company Number: 2005166448

PATIENT
  Age: 75 Year
  Sex: Male
  Weight: 55 kg

DRUGS (14)
  1. UNASYN [Suspect]
     Indication: ENDOCARDITIS
     Dosage: 3 GRAM INTRAVENOUS
     Route: 042
     Dates: start: 20051203, end: 20051205
  2. UNASYN [Suspect]
     Indication: PYREXIA
     Dosage: 3 GRAM INTRAVENOUS
     Route: 042
     Dates: start: 20051203, end: 20051205
  3. DAONIL (GLIBENCLAMIDE) [Suspect]
     Indication: ILL-DEFINED DISORDER
     Dosage: 2.5 MG (1 IN 1 D), ORAL
     Route: 048
     Dates: end: 20051204
  4. ALLOPURINOL [Concomitant]
  5. OMEPRAZOLE [Concomitant]
  6. GASTROM (ECABET MONOSODIUM) [Concomitant]
  7. MUCOSTA (REBAMIPIDE) [Concomitant]
  8. PANTOSIN (PANTETHINE) [Concomitant]
  9. NAUZELIN (DOMPERIDONE) [Concomitant]
  10. MYONAL (EPERISONE HYDROCHLORIDE) [Concomitant]
  11. NEUROTROPIN (ORGAN LYSATE, STANDARDIZED) [Concomitant]
  12. RHYTHMY (RILMAZOFONE) [Concomitant]
  13. PURSENNID (SENNA LEAF) [Concomitant]
  14. MOBILAT (ADRENAL CORTICAL EXTRACT, MUCOPOLYSACCHARIDE POLYSULFURIC ACI [Concomitant]

REACTIONS (8)
  - CONVULSION [None]
  - DEPRESSED LEVEL OF CONSCIOUSNESS [None]
  - FIBRIN DEGRADATION PRODUCTS INCREASED [None]
  - HYPOGLYCAEMIA [None]
  - LOSS OF CONSCIOUSNESS [None]
  - NASOPHARYNGITIS [None]
  - ORAL INTAKE REDUCED [None]
  - RESTLESSNESS [None]
